FAERS Safety Report 23873521 (Version 3)
Quarter: 2024Q2

REPORT INFORMATION
  Report Type: Report from Study
  Country: US (occurrence: US)
  Receive Date: 20240520
  Receipt Date: 20240626
  Transmission Date: 20240715
  Serious: Yes (Other)
  Sender: FDA-Public Use
  Company Number: US-ABBVIE-5765506

PATIENT
  Sex: Male
  Weight: 98 kg

DRUGS (2)
  1. SKYRIZI [Suspect]
     Active Substance: RISANKIZUMAB-RZAA
     Indication: Crohn^s disease
     Route: 058
     Dates: start: 20231205
  2. SKYRIZI [Suspect]
     Active Substance: RISANKIZUMAB-RZAA
     Route: 058

REACTIONS (10)
  - Postoperative wound infection [Recovered/Resolved]
  - Fasciotomy [Unknown]
  - Protein S deficiency [Unknown]
  - Peripheral arterial occlusive disease [Unknown]
  - Thrombectomy [Unknown]
  - Arterial occlusive disease [Unknown]
  - Incision site swelling [Unknown]
  - Coagulopathy [Unknown]
  - Erythema [Unknown]
  - Incision site discharge [Unknown]
